FAERS Safety Report 12800671 (Version 1)
Quarter: 2016Q4

REPORT INFORMATION
  Report Type: Spontaneous
  Country: US (occurrence: US)
  Receive Date: 20161001
  Receipt Date: 20161001
  Transmission Date: 20170207
  Serious: No
  Sender: FDA-Public Use
  Company Number: US-SUN PHARMACEUTICAL INDUSTRIES LTD-2015US-104815

PATIENT
  Sex: Female

DRUGS (2)
  1. LORATADINE. [Suspect]
     Active Substance: LORATADINE
     Indication: PRURITUS
  2. LORATADINE. [Suspect]
     Active Substance: LORATADINE
     Indication: PRURITUS
     Dosage: 10 MG, SINGLE
     Route: 065
     Dates: start: 20150926

REACTIONS (1)
  - Off label use [Unknown]

NARRATIVE: CASE EVENT DATE: 20150926
